FAERS Safety Report 8580825-1 (Version None)
Quarter: 2012Q3

REPORT INFORMATION
  Report Type: 
  Country: None (occurrence: None)
  Receive Date: 20120726
  Receipt Date: 20120711
  Transmission Date: 20120928
  Serious: Yes (Hospitalization)
  Sender: FDA-Public Use
  Company Number: TW-008873

PATIENT
  Age: 80 Year
  Sex: Male
  Weight: 56.6 kg

DRUGS (6)
  1. SINOMIN [Concomitant]
  2. QUINAX [Concomitant]
  3. SABRIL [Suspect]
     Indication: PROSTATE CANCER
     Dosage: (240 MG QD SUBCUTANEOUS), (80 MG 1X/MONTH SUBCUTANEOUS)
     Route: 058
     Dates: start: 20120419
  4. SABRIL [Suspect]
     Indication: PROSTATE CANCER
     Dosage: (240 MG QD SUBCUTANEOUS), (80 MG 1X/MONTH SUBCUTANEOUS)
     Route: 058
     Dates: start: 20120320, end: 20120320
  5. CLOBETASOL PROPIONATE [Concomitant]
  6. CROTAMITON [Concomitant]

REACTIONS (8)
  - LYMPHADENOPATHY [None]
  - NODULE [None]
  - RASH ERYTHEMATOUS [None]
  - EMPHYSEMA [None]
  - PAIN [None]
  - ASTHENIA [None]
  - PULMONARY FIBROSIS [None]
  - PLEURAL FIBROSIS [None]
